FAERS Safety Report 25004153 (Version 1)
Quarter: 2025Q1

REPORT INFORMATION
  Report Type: Spontaneous
  Country: US (occurrence: None)
  Receive Date: 20250224
  Receipt Date: 20250224
  Transmission Date: 20250409
  Serious: No
  Sender: INCYTE
  Company Number: US-INCYTE CORPORATION-2025IN001613

PATIENT
  Age: 59 Year

DRUGS (1)
  1. JAKAFI [Suspect]
     Active Substance: RUXOLITINIB
     Indication: Product used for unknown indication
     Dosage: 15 MILLIGRAM, BID

REACTIONS (3)
  - Vitreous floaters [Unknown]
  - Nausea [Unknown]
  - Diarrhoea [Unknown]
